FAERS Safety Report 8573638-8 (Version None)
Quarter: 2012Q2

REPORT INFORMATION
  Report Type: 
  Country: None (occurrence: None)
  Receive Date: 20120423
  Receipt Date: 20100105
  Transmission Date: 20120825
  Serious: Yes (Hospitalization, Other)
  Sender: FDA-Public Use
  Company Number: PHEH2009US11312

PATIENT
  Age: 28 Year
  Sex: Female

DRUGS (10)
  1. OMEPRAZOLE [Concomitant]
  2. RESTORIL [Concomitant]
  3. PERCOCET [Concomitant]
  4. EXJADE [Suspect]
     Indication: SICKLE CELL ANAEMIA
     Dosage: 1250 MG, QD, ORAL : ^LOWER DOSE^/SLOW TAPER, ORAL
     Route: 048
     Dates: start: 20090908
  5. EXJADE [Suspect]
     Indication: IRON OVERLOAD
     Dosage: 1250 MG, QD, ORAL : ^LOWER DOSE^/SLOW TAPER, ORAL
     Route: 048
     Dates: start: 20090908
  6. EXJADE [Suspect]
     Indication: SICKLE CELL ANAEMIA
     Dosage: 1250 MG, QD, ORAL : ^LOWER DOSE^/SLOW TAPER, ORAL
     Route: 048
     Dates: start: 20090830
  7. EXJADE [Suspect]
     Indication: IRON OVERLOAD
     Dosage: 1250 MG, QD, ORAL : ^LOWER DOSE^/SLOW TAPER, ORAL
     Route: 048
     Dates: start: 20090830
  8. LEXAPRO [Concomitant]
  9. TAMIFLU [Concomitant]
  10. OXYCONTIN [Concomitant]

REACTIONS (16)
  - MEAN PLATELET VOLUME INCREASED [None]
  - WHITE BLOOD CELL COUNT INCREASED [None]
  - ARTHRALGIA [None]
  - NAUSEA [None]
  - DEHYDRATION [None]
  - ANAEMIA [None]
  - PAIN [None]
  - SICKLE CELL ANAEMIA WITH CRISIS [None]
  - DIARRHOEA [None]
  - FEELING ABNORMAL [None]
  - ASTHENIA [None]
  - VOMITING [None]
  - MALAISE [None]
  - MYALGIA [None]
  - BODY TEMPERATURE INCREASED [None]
  - DYSPNOEA [None]
